FAERS Safety Report 8436517-2 (Version None)
Quarter: 2012Q2

REPORT INFORMATION
  Report Type: 
  Country: None (occurrence: None)
  Receive Date: 20120614
  Receipt Date: 20120607
  Transmission Date: 20120825
  Serious: Yes (Hospitalization, Other)
  Sender: FDA-Public Use
  Company Number: EC-GLAXOSMITHKLINE-A0981048A

PATIENT
  Age: 39 Year
  Sex: Female

DRUGS (1)
  1. LAMICTAL [Suspect]
     Indication: EPILEPSY
     Dosage: 25MG PER DAY
     Route: 048
     Dates: start: 20120501, end: 20120501

REACTIONS (4)
  - STEVENS-JOHNSON SYNDROME [None]
  - HYPERSENSITIVITY [None]
  - PNEUMONIA [None]
  - RESPIRATORY DISTRESS [None]
